FAERS Safety Report 18099184 (Version 2)
Quarter: 2020Q4

REPORT INFORMATION
  Report Type: Spontaneous
  Country: JP (occurrence: JP)
  Receive Date: 20200731
  Receipt Date: 20201013
  Transmission Date: 20210113
  Serious: Yes (Other)
  Sender: FDA-Public Use
  Company Number: JP-TEVA-2020-JP-004963J

PATIENT
  Sex: Male

DRUGS (6)
  1. E KEPPRA [Concomitant]
     Active Substance: LEVETIRACETAM
     Indication: EPILEPSY
     Dosage: 3000 MILLIGRAM DAILY;
     Route: 048
  2. RIZE [Concomitant]
     Active Substance: CLOTIAZEPAM
     Route: 048
  3. EURODIN 2MG TABLETS [Suspect]
     Active Substance: ESTAZOLAM
     Indication: PRODUCT USED FOR UNKNOWN INDICATION
     Route: 048
  4. EURODIN 2MG TABLETS [Suspect]
     Active Substance: ESTAZOLAM
     Dosage: 2 MILLIGRAM DAILY;
     Route: 048
  5. EURODIN 2MG TABLETS [Suspect]
     Active Substance: ESTAZOLAM
     Dosage: 1 MILLIGRAM DAILY;
     Route: 048
  6. BROTIZOLAM OD TABLET 0.25MG ^TEVA^ [Suspect]
     Active Substance: BROTIZOLAM
     Indication: PRODUCT USED FOR UNKNOWN INDICATION
     Route: 048

REACTIONS (5)
  - Insomnia [Unknown]
  - Seizure like phenomena [Unknown]
  - Drug ineffective [Unknown]
  - Middle insomnia [Unknown]
  - Product measured potency issue [Unknown]
